FAERS Safety Report 14920199 (Version 2)
Quarter: 2018Q3

REPORT INFORMATION
  Report Type: Report from Study
  Country: JP (occurrence: JP)
  Receive Date: 20180521
  Receipt Date: 20180906
  Transmission Date: 20181010
  Serious: Yes (Other)
  Sender: FDA-Public Use
  Company Number: JP-ASTRAZENECA-2018SE66654

PATIENT
  Age: 28584 Day
  Sex: Male

DRUGS (15)
  1. DILTIAZEM. [Concomitant]
     Active Substance: DILTIAZEM
     Route: 048
  2. SEROTONE [Concomitant]
     Active Substance: AZASETRON HYDROCHLORIDE
     Dosage: 10.0MG UNKNOWN
     Route: 041
     Dates: start: 20170424, end: 20170501
  3. DEXART [Concomitant]
     Active Substance: DEXAMETHASONE SODIUM PHOSPHATE
     Route: 041
     Dates: start: 20170424, end: 20170501
  4. GRAMALIL [Concomitant]
     Active Substance: TIAPRIDE HYDROCHLORIDE
     Dosage: 25.0MG UNKNOWN
     Route: 048
  5. AMITIZA [Concomitant]
     Active Substance: LUBIPROSTONE
     Dosage: 24.0UG UNKNOWN
     Route: 048
  6. CLOTIAZEPAM [Concomitant]
     Active Substance: CLOTIAZEPAM
     Dosage: 5.0MG UNKNOWN
     Route: 048
  7. PRAZAXA [Concomitant]
     Active Substance: DABIGATRAN ETEXILATE MESYLATE
     Dosage: 220.0MG UNKNOWN
     Route: 048
     Dates: start: 20170512
  8. EKLIRA [Suspect]
     Active Substance: ACLIDINIUM BROMIDE
     Indication: CHRONIC OBSTRUCTIVE PULMONARY DISEASE
     Route: 055
     Dates: start: 20170419, end: 20170515
  9. FAMOTIDINE. [Concomitant]
     Active Substance: FAMOTIDINE
     Route: 048
  10. ABRAXANE [Concomitant]
     Active Substance: PACLITAXEL
     Dosage: 121.68MG UNKNOWN
     Route: 041
     Dates: start: 20170424, end: 20170501
  11. URIEF [Suspect]
     Active Substance: SILODOSIN
     Indication: BENIGN PROSTATIC HYPERPLASIA
     Route: 048
     Dates: start: 20170424, end: 20170515
  12. MAGMITT [Concomitant]
     Active Substance: MAGNESIUM OXIDE
     Route: 048
  13. RISUMIC [Suspect]
     Active Substance: AMEZINIUM METILSULFATE
     Indication: ORTHOSTATIC HYPOTENSION
     Route: 048
     Dates: start: 20170514
  14. WARFARIN POTASSIUM [Concomitant]
     Active Substance: WARFARIN POTASSIUM
     Route: 048
     Dates: end: 20170511
  15. CARBOPLATIN. [Concomitant]
     Active Substance: CARBOPLATIN
     Dosage: 286.8MG UNKNOWN
     Route: 041
     Dates: start: 20170424, end: 20170501

REACTIONS (1)
  - Atrial flutter [Recovered/Resolved]

NARRATIVE: CASE EVENT DATE: 20170515
